FAERS Safety Report 16097634 (Version 1)
Quarter: 2019Q1

REPORT INFORMATION
  Report Type: Spontaneous
  Country: SI (occurrence: SI)
  Receive Date: 20190320
  Receipt Date: 20190320
  Transmission Date: 20190418
  Serious: Yes (Other)
  Sender: FDA-Public Use
  Company Number: SI-PFIZER INC-2019115030

PATIENT
  Age: 75 Year
  Sex: Male

DRUGS (3)
  1. METHYLPREDNISOLONE. [Suspect]
     Active Substance: METHYLPREDNISOLONE
     Dosage: 8 MG, UNK
     Route: 065
  2. NEBIVOLOL. [Suspect]
     Active Substance: NEBIVOLOL
     Dosage: 10 MG, UNK (2X5 MG)
     Route: 065
  3. AMLODIPINE/VALSARTAN [Suspect]
     Active Substance: AMLODIPINE\VALSARTAN
     Route: 065

REACTIONS (4)
  - Asthma [Unknown]
  - Blood pressure decreased [Unknown]
  - Inflammatory bowel disease [Unknown]
  - Blood pressure increased [Unknown]
